FAERS Safety Report 25466046 (Version 1)
Quarter: 2025Q2

REPORT INFORMATION
  Report Type: Spontaneous
  Country: CN (occurrence: CN)
  Receive Date: 20250623
  Receipt Date: 20250623
  Transmission Date: 20250717
  Serious: Yes (Hospitalization, Other)
  Sender: Steriscience PTE
  Company Number: CN-STERISCIENCE B.V.-2025-ST-001185

PATIENT
  Age: 80 Year
  Sex: Male

DRUGS (7)
  1. MEROPENEM [Suspect]
     Active Substance: MEROPENEM
     Indication: Pneumonia bacterial
     Route: 042
  2. PIPERACILLIN\SULBACTAM [Suspect]
     Active Substance: PIPERACILLIN\SULBACTAM
     Indication: Evidence based treatment
     Route: 065
  3. PIPERACILLIN\SULBACTAM [Suspect]
     Active Substance: PIPERACILLIN\SULBACTAM
     Indication: Pneumonia
  4. LINEZOLID [Suspect]
     Active Substance: LINEZOLID
     Indication: Pneumonia bacterial
     Route: 065
  5. OSELTAMIVIR [Suspect]
     Active Substance: OSELTAMIVIR
     Indication: Pneumonia viral
     Route: 065
  6. METHYLPREDNISOLONE [Suspect]
     Active Substance: METHYLPREDNISOLONE
     Indication: Product used for unknown indication
     Route: 065
  7. NOREPINEPHRINE [Concomitant]
     Active Substance: NOREPINEPHRINE
     Indication: Blood pressure management
     Route: 065

REACTIONS (2)
  - Jarisch-Herxheimer reaction [None]
  - Drug ineffective [Unknown]
